FAERS Safety Report 8241804-7 (Version None)
Quarter: 2012Q1

REPORT INFORMATION
  Report Type: 
  Country: None (occurrence: None)
  Receive Date: 20120328
  Receipt Date: 20120319
  Transmission Date: 20120608
  Serious: Yes (Hospitalization)
  Sender: FDA-Public Use
  Company Number: US-ASTRAZENECA-2012SE18983

PATIENT
  Age: 50 Year
  Sex: Female
  Weight: 83.9 kg

DRUGS (5)
  1. RESCUE INHALER [Concomitant]
  2. SUPPOSITORY [Concomitant]
  3. SINGULAIR [Concomitant]
  4. DIAZEPAM [Concomitant]
     Indication: RESTLESS LEGS SYNDROME
  5. SYMBICORT [Suspect]
     Indication: ASTHMA
     Dosage: 2 PUFFS TWO TIMES A DAY
     Route: 055
     Dates: start: 20100101

REACTIONS (4)
  - SMALL INTESTINAL OBSTRUCTION [None]
  - DRUG DOSE OMISSION [None]
  - DYSPNOEA [None]
  - BRONCHOSPASM [None]
